FAERS Safety Report 14942919 (Version 1)
Quarter: 2018Q2

REPORT INFORMATION
  Report Type: Spontaneous
  Country: JM (occurrence: JM)
  Receive Date: 20180528
  Receipt Date: 20180528
  Transmission Date: 20180711
  Serious: Yes (Other)
  Sender: FDA-Public Use
  Company Number: JM-GLAXOSMITHKLINE-JM2018GSK093349

PATIENT
  Age: 43 Year
  Sex: Female

DRUGS (1)
  1. SERETIDE [Suspect]
     Active Substance: FLUTICASONE PROPIONATE\SALMETEROL XINAFOATE
     Indication: ASTHMA
     Dosage: 50 ?G, QID
     Route: 055
     Dates: start: 2017

REACTIONS (5)
  - Sleep disorder [Unknown]
  - Overdose [Unknown]
  - Loss of consciousness [Unknown]
  - Anxiety [Unknown]
  - Intentional product misuse [Unknown]
